FAERS Safety Report 20452716 (Version 1)
Quarter: 2022Q1

REPORT INFORMATION
  Report Type: Spontaneous
  Country: DE (occurrence: DE)
  Receive Date: 20220210
  Receipt Date: 20220210
  Transmission Date: 20220424
  Serious: Yes (Death, Hospitalization, Other)
  Sender: FDA-Public Use
  Company Number: DE-LEO Pharma-340025

PATIENT
  Age: 53 Year
  Sex: Male

DRUGS (5)
  1. DEVICE [Suspect]
     Active Substance: DEVICE
     Indication: Dermatitis atopic
  2. TRALOKINUMAB [Suspect]
     Active Substance: TRALOKINUMAB
     Indication: Dermatitis atopic
     Dates: start: 20210927
  3. FEXOFENADINE HYDROCHLORIDE [Concomitant]
     Active Substance: FEXOFENADINE HYDROCHLORIDE
     Indication: Product used for unknown indication
     Dosage: 1 - 0 - 1
  4. ALLOPURINOL [Concomitant]
     Active Substance: ALLOPURINOL
     Indication: Product used for unknown indication
     Dosage: 1 - 0 - 1
  5. CHOLECALCIFEROL [Concomitant]
     Active Substance: CHOLECALCIFEROL
     Indication: Product used for unknown indication
     Dosage: ON MONDAYS

REACTIONS (2)
  - Lymphoma [Fatal]
  - Lymphoma [Fatal]

NARRATIVE: CASE EVENT DATE: 20211129
